FAERS Safety Report 15748107 (Version 1)
Quarter: 2018Q4

REPORT INFORMATION
  Report Type: Spontaneous
  Country: IE (occurrence: IE)
  Receive Date: 20181221
  Receipt Date: 20181221
  Transmission Date: 20190205
  Serious: Yes (Hospitalization, Other)
  Sender: FDA-Public Use
  Company Number: IE-UCBSA-2018054380

PATIENT
  Age: 51 Year
  Sex: Female

DRUGS (1)
  1. CIMZIA [Suspect]
     Active Substance: CERTOLIZUMAB PEGOL
     Indication: PALMAR-PLANTAR ERYTHRODYSAESTHESIA SYNDROME
     Dosage: 2 INJECTIONS GIVEN, 3RD WITHHELD DUE TO RASH, EV 2 WEEKS(QOW)
     Dates: start: 2018, end: 2018

REACTIONS (17)
  - Chills [Not Recovered/Not Resolved]
  - Intentional product misuse [Unknown]
  - Skin weeping [Not Recovered/Not Resolved]
  - Dermatitis exfoliative generalised [Not Recovered/Not Resolved]
  - Joint noise [Not Recovered/Not Resolved]
  - Dry skin [Not Recovered/Not Resolved]
  - Palpitations [Not Recovered/Not Resolved]
  - Skin exfoliation [Not Recovered/Not Resolved]
  - Skin discolouration [Not Recovered/Not Resolved]
  - Alopecia [Not Recovered/Not Resolved]
  - Onychomadesis [Not Recovered/Not Resolved]
  - Condition aggravated [Not Recovered/Not Resolved]
  - Stress [Not Recovered/Not Resolved]
  - Anxiety [Not Recovered/Not Resolved]
  - Peripheral swelling [Not Recovered/Not Resolved]
  - Hypokinesia [Not Recovered/Not Resolved]
  - Pyrexia [Not Recovered/Not Resolved]

NARRATIVE: CASE EVENT DATE: 2018
